FAERS Safety Report 5840758-8 (Version None)
Quarter: 2008Q3

REPORT INFORMATION
  Report Type: 
  Country: None (occurrence: None)
  Receive Date: 20080811
  Receipt Date: 20080730
  Transmission Date: 20090109
  Serious: Yes (Disabling)
  Sender: FDA-Public Use
  Company Number: ES-PFIZER INC-2008008134

PATIENT
  Sex: Male

DRUGS (8)
  1. VORICONAZOLE [Suspect]
     Indication: EVIDENCE BASED TREATMENT
     Dates: start: 20080111, end: 20080122
  2. VANCOMYCIN HCL [Concomitant]
     Route: 042
     Dates: start: 20080107, end: 20080122
  3. MEROPENEM [Concomitant]
     Route: 042
     Dates: start: 20080107, end: 20080120
  4. AMBISOME [Concomitant]
     Route: 042
     Dates: start: 20080107, end: 20080112
  5. DOPAMINE HCL [Concomitant]
     Route: 042
     Dates: start: 20080107, end: 20080120
  6. BACTRIM [Concomitant]
     Route: 042
     Dates: start: 20080107, end: 20080116
  7. AMIKACIN [Concomitant]
     Route: 042
     Dates: start: 20080107, end: 20080121
  8. RANITIDINE [Concomitant]
     Route: 042

REACTIONS (5)
  - HAEMORRHAGE INTRACRANIAL [None]
  - IIIRD NERVE PARALYSIS [None]
  - LIP EROSION [None]
  - RENAL FAILURE [None]
  - VIITH NERVE PARALYSIS [None]
